FAERS Safety Report 6387003-5 (Version None)
Quarter: 2009Q4

REPORT INFORMATION
  Report Type: 
  Country: None (occurrence: None)
  Receive Date: 20091002
  Receipt Date: 20090928
  Transmission Date: 20100525
  Serious: Yes (Death, Hospitalization)
  Sender: FDA-Public Use
  Company Number: FR-BRISTOL-MYERS SQUIBB COMPANY-14797880

PATIENT
  Age: 76 Year
  Sex: Male

DRUGS (3)
  1. ORENCIA [Suspect]
     Dosage: START: JAN OR FEB09,2INJ,500MG,INTERRUPTED AND RESTARTED ON JUN09,1 INJ,500MG JUN09 AND JUL09.
     Dates: start: 20090101
  2. CORTANCYL [Suspect]
  3. METHOTREXATE [Concomitant]

REACTIONS (3)
  - DEATH [None]
  - MYOCARDIAL INFARCTION [None]
  - PNEUMOCYSTIS JIROVECI PNEUMONIA [None]
